FAERS Safety Report 6682616-5 (Version None)
Quarter: 2010Q2

REPORT INFORMATION
  Report Type: 
  Country: None (occurrence: None)
  Receive Date: 20100415
  Receipt Date: 20100404
  Transmission Date: 20101027
  Serious: Yes (Other)
  Sender: FDA-Public Use
  Company Number: PHHY2010US22032

PATIENT
  Age: 74 Year
  Sex: Male

DRUGS (1)
  1. RECLAST [Suspect]
     Dosage: 5 MG
     Route: 042
     Dates: start: 20100301

REACTIONS (3)
  - HYPOCALCAEMIA [None]
  - OSTEOPOROSIS [None]
  - PAIN [None]
